FAERS Safety Report 8565822-4 (Version None)
Quarter: 2012Q3

REPORT INFORMATION
  Report Type: 
  Country: None (occurrence: None)
  Receive Date: 20120724
  Receipt Date: 20120711
  Transmission Date: 20120928
  Serious: Yes (Death, Other)
  Sender: FDA-Public Use
  Company Number: 2012P1050072

PATIENT
  Age: 24 Year
  Sex: Female

DRUGS (8)
  1. MEPROBAMATE [Suspect]
     Indication: ACCIDENTAL POISONING
  2. METHADONE HCL [Suspect]
     Indication: ACCIDENTAL POISONING
  3. DIPHENHYDRAMINE HCL [Suspect]
     Indication: ACCIDENTAL POISONING
  4. ACETAMINOPHEN [Suspect]
     Indication: ACCIDENTAL POISONING
  5. HYDROMORPHONE HCL [Suspect]
     Indication: ACCIDENTAL POISONING
  6. LEVETIRACETAM [Suspect]
     Indication: ACCIDENTAL POISONING
  7. 7-AMINOCLONAZEPAM (NO PREF. NAME) [Suspect]
     Indication: ACCIDENTAL POISONING
  8. HYDROCODONE BITARTRATE [Suspect]
     Indication: ACCIDENTAL POISONING

REACTIONS (1)
  - ACCIDENTAL POISONING [None]
